FAERS Safety Report 5113428-1 (Version None)
Quarter: 2006Q3

REPORT INFORMATION
  Report Type: 
  Country: None (occurrence: None)
  Receive Date: 20060921
  Receipt Date: 20060921
  Transmission Date: 20061208
  Serious: No
  Sender: FDA-Public Use
  Company Number: None

PATIENT
  Age: 49 Year
  Sex: Female
  Weight: 83.9154 kg

DRUGS (1)
  1. ADVAIR DISKUS 100/50 [Suspect]
     Indication: ASTHMA
     Dosage: INHALE  1 PUFF   TWICE DAILY   PO
     Route: 048
     Dates: start: 20030829, end: 20051117

REACTIONS (4)
  - ASTHMA [None]
  - LARYNGITIS [None]
  - ORAL FUNGAL INFECTION [None]
  - UPPER RESPIRATORY TRACT INFECTION [None]
